FAERS Safety Report 23450282 (Version 1)
Quarter: 2024Q1

REPORT INFORMATION
  Report Type: Spontaneous
  Country: CN (occurrence: CN)
  Receive Date: 20240129
  Receipt Date: 20240129
  Transmission Date: 20240409
  Serious: Yes (Hospitalization)
  Sender: FDA-Public Use
  Company Number: CN-GLAXOSMITHKLINE-CN2024APC010293

PATIENT

DRUGS (2)
  1. FLUTICASONE FUROATE\UMECLIDINIUM BROMIDE\VILANTEROL TRIFENATATE [Suspect]
     Active Substance: FLUTICASONE FUROATE\UMECLIDINIUM BROMIDE\VILANTEROL TRIFENATATE
     Indication: Chronic obstructive pulmonary disease
     Dosage: 1 DF, QD
     Dates: start: 20210421, end: 20240122
  2. CHLORHEXIDINE [Concomitant]
     Active Substance: CHLORHEXIDINE\CHLORHEXIDINE GLUCONATE
     Indication: Product used for unknown indication
     Dosage: 20 ML

REACTIONS (3)
  - Oropharyngeal pain [Recovered/Resolved]
  - Oral fungal infection [Recovered/Resolved]
  - Ulcer [Recovered/Resolved]

NARRATIVE: CASE EVENT DATE: 20240110
